FAERS Safety Report 9765013 (Version 1)
Quarter: 2013Q4

REPORT INFORMATION
  Report Type: Spontaneous
  Country: JP (occurrence: JP)
  Receive Date: 20131217
  Receipt Date: 20131217
  Transmission Date: 20140711
  Serious: Yes (Life-Threatening)
  Sender: FDA-Public Use
  Company Number: JP-ELI_LILLY_AND_COMPANY-JP201312004972

PATIENT
  Age: 75 Year
  Sex: Male
  Weight: 48 kg

DRUGS (17)
  1. ADCIRCA [Suspect]
     Indication: PULMONARY ARTERIAL HYPERTENSION
     Dosage: UNK
     Dates: start: 20120510, end: 20120717
  2. AMBRISENTAN [Suspect]
     Indication: PULMONARY ARTERIAL HYPERTENSION
     Dosage: 5 MG, QD
     Route: 048
     Dates: start: 20120419, end: 20120426
  3. AMBRISENTAN [Suspect]
     Dosage: 5 MG, QD
     Route: 048
     Dates: start: 20120612, end: 20120714
  4. TAKEPRON [Concomitant]
  5. PLAVIX [Concomitant]
  6. RISPERDAL [Concomitant]
  7. FEBUXOSTAT [Concomitant]
  8. PURSENNID [Concomitant]
  9. SAMSCA [Concomitant]
  10. OXYGEN [Concomitant]
  11. XYZAL [Concomitant]
  12. BERAPROST SODIUM [Concomitant]
     Dosage: UNK
     Dates: start: 20120522, end: 20120717
  13. MAGLAX [Concomitant]
  14. FERROMIA [Concomitant]
  15. FUROSEMIDE [Concomitant]
  16. LENDORMIN [Concomitant]
  17. MEVALOTIN [Concomitant]
     Dosage: UNK

REACTIONS (2)
  - Anaemia [Not Recovered/Not Resolved]
  - Blood pressure decreased [Unknown]
